FAERS Safety Report 9221653 (Version 2)
Quarter: 2013Q2

REPORT INFORMATION
  Report Type: Spontaneous
  Country: KR (occurrence: None)
  Receive Date: 20130408
  Receipt Date: 20130502
  Transmission Date: 20140414
  Serious: Yes (Other)
  Sender: FDA-Public Use
  Company Number: JP-2013-10806

PATIENT
  Age: 52 Year
  Sex: Male

DRUGS (1)
  1. TOLVAPTAN [Suspect]

REACTIONS (14)
  - Hepatic encephalopathy [None]
  - Somnolence [None]
  - Polyuria [None]
  - Headache [None]
  - Abdominal pain [None]
  - Mouth ulceration [None]
  - Hyperkalaemia [None]
  - Decreased appetite [None]
  - Pain in extremity [None]
  - Asthenia [None]
  - Dizziness [None]
  - Oedema [None]
  - Hepatic cirrhosis [None]
  - Disease progression [None]
